FAERS Safety Report 21369879 (Version 1)
Quarter: 2022Q3

REPORT INFORMATION
  Report Type: Spontaneous
  Country: US (occurrence: None)
  Receive Date: 20220922
  Receipt Date: 20220922
  Transmission Date: 20221027
  Serious: Yes (Hospitalization)
  Sender: FDA-Public Use
  Company Number: None

PATIENT
  Sex: Female

DRUGS (8)
  1. HUMIRA [Suspect]
     Active Substance: ADALIMUMAB
     Indication: Psoriatic arthropathy
     Route: 058
     Dates: start: 20211223
  2. BRIVIACT TAB [Concomitant]
  3. BUSPIRONE TAB [Concomitant]
  4. FETZIMA CAP [Concomitant]
  5. GABAPENTIN TAB [Concomitant]
  6. LISINOPRIL [Concomitant]
     Active Substance: LISINOPRIL
  7. SEROQUEL TAB [Concomitant]
  8. TRAZODONE TAB [Concomitant]

REACTIONS (4)
  - Condition aggravated [None]
  - Rash [None]
  - Arthralgia [None]
  - Skin irritation [None]
